FAERS Safety Report 7575454-2 (Version None)
Quarter: 2011Q2

REPORT INFORMATION
  Report Type: 
  Country: None (occurrence: None)
  Receive Date: 20110627
  Receipt Date: 20110621
  Transmission Date: 20111010
  Serious: Yes (Other)
  Sender: FDA-Public Use
  Company Number: US-PFIZER INC-2011038460

PATIENT
  Sex: Female

DRUGS (1)
  1. CHANTIX [Suspect]
     Dosage: UNK
     Dates: start: 20071001

REACTIONS (5)
  - SUICIDAL IDEATION [None]
  - INTENTIONAL SELF-INJURY [None]
  - PSYCHIATRIC SYMPTOM [None]
  - AMNESIA [None]
  - INSOMNIA [None]
